FAERS Safety Report 7081514-5 (Version None)
Quarter: 2010Q4

REPORT INFORMATION
  Report Type: 
  Country: None (occurrence: None)
  Receive Date: 20101103
  Receipt Date: 20101020
  Transmission Date: 20110411
  Serious: Yes (Disabling, Other)
  Sender: FDA-Public Use
  Company Number: PK-JNJFOC-20101100918

PATIENT
  Age: 62 Year
  Sex: Male

DRUGS (3)
  1. TRAMADOL HYDROCHLORIDE [Suspect]
     Indication: PAIN IN EXTREMITY
     Route: 065
  2. CELECOXIB [Suspect]
     Indication: PAIN IN EXTREMITY
     Route: 065
  3. MORPHINE [Suspect]
     Indication: PAIN IN EXTREMITY
     Route: 065

REACTIONS (3)
  - ABASIA [None]
  - PAIN [None]
  - THERAPEUTIC RESPONSE DECREASED [None]
